FAERS Safety Report 9335200 (Version 2)
Quarter: 2013Q2

REPORT INFORMATION
  Report Type: Report from Study
  Country: GB (occurrence: GB)
  Receive Date: 20130606
  Receipt Date: 20130627
  Transmission Date: 20140414
  Serious: Yes (Death, Hospitalization)
  Sender: FDA-Public Use
  Company Number: GB-GLAXOSMITHKLINE-B0896583A

PATIENT
  Age: 61 Year
  Sex: Male
  Weight: 95 kg

DRUGS (8)
  1. PAZOPANIB [Suspect]
     Indication: TRANSITIONAL CELL CARCINOMA
     Dosage: 800MG PER DAY
     Route: 048
     Dates: start: 20130430
  2. MORPHINE [Suspect]
     Indication: PAIN
     Route: 048
     Dates: start: 20130101, end: 20130527
  3. ORAMORPH [Suspect]
     Indication: PAIN
     Route: 048
     Dates: start: 20130101, end: 20130527
  4. ALLOPURINOL [Concomitant]
     Indication: GOUT
     Dosage: 300MG PER DAY
     Route: 048
     Dates: start: 20111130
  5. PARACETAMOL [Concomitant]
     Indication: PAIN
     Dosage: 1G AS REQUIRED
     Route: 048
     Dates: start: 20111130
  6. AMITRIPTYLINE [Concomitant]
     Indication: PAIN
     Dosage: 50MG PER DAY
     Route: 048
     Dates: start: 20130430
  7. DEXAMETHASONE [Concomitant]
     Indication: PAIN
     Dosage: 8G PER DAY
     Route: 048
     Dates: start: 20130430
  8. LANSOPRAZOLE [Concomitant]
     Indication: PROPHYLAXIS
     Dosage: 20MG PER DAY
     Route: 048
     Dates: start: 20130430

REACTIONS (4)
  - Renal failure acute [Fatal]
  - Confusional state [Not Recovered/Not Resolved]
  - Blood creatinine increased [Not Recovered/Not Resolved]
  - Haematuria [Not Recovered/Not Resolved]
